FAERS Safety Report 10412365 (Version 1)
Quarter: 2014Q3

REPORT INFORMATION
  Report Type: Spontaneous
  Country: JP (occurrence: None)
  Receive Date: 20140821
  Receipt Date: 20140821
  Transmission Date: 20150326
  Serious: Yes (Hospitalization, Other)
  Sender: FDA-Public Use
  Company Number: 1302-239

PATIENT
  Age: 69 Year
  Sex: Male
  Weight: 57 kg

DRUGS (5)
  1. AMARYL (GLIMEPIRIIDE) [Concomitant]
  2. DIOVAN [Concomitant]
     Active Substance: VALSARTAN
  3. BASEN [Concomitant]
     Active Substance: VOGLIBOSE
  4. LIPITOR [Concomitant]
     Active Substance: ATORVASTATIN CALCIUM
  5. VEGF TRAP-EYE OR LASER TREATMENT (CODE NOT BROKEN) [Suspect]
     Active Substance: AFLIBERCEPT
     Indication: DIABETIC RETINAL OEDEMA
     Route: 031
     Dates: start: 20110913, end: 20120327

REACTIONS (2)
  - Myocardial ischaemia [None]
  - Coronary artery disease [None]

NARRATIVE: CASE EVENT DATE: 20120515
